FAERS Safety Report 21090074 (Version 1)
Quarter: 2022Q3

REPORT INFORMATION
  Report Type: Spontaneous
  Country: JP (occurrence: JP)
  Receive Date: 20220715
  Receipt Date: 20220715
  Transmission Date: 20221027
  Serious: Yes (Other)
  Sender: FDA-Public Use
  Company Number: JP-UCBSA-2022040248

PATIENT
  Age: 3 Year
  Sex: Male

DRUGS (8)
  1. LEVETIRACETAM [Suspect]
     Active Substance: LEVETIRACETAM
     Indication: Simple partial seizures
     Dosage: UNK
  2. VIMPAT [Suspect]
     Active Substance: LACOSAMIDE
     Indication: Simple partial seizures
     Dosage: UNK
  3. VALPROIC ACID [Suspect]
     Active Substance: VALPROIC ACID
     Indication: Simple partial seizures
     Dosage: UNK
  4. LAMOTRIGINE [Suspect]
     Active Substance: LAMOTRIGINE
     Indication: Simple partial seizures
     Dosage: UNK
  5. CLOBAZAM [Suspect]
     Active Substance: CLOBAZAM
     Indication: Simple partial seizures
     Dosage: UNK
  6. EVEROLIMUS [Concomitant]
     Active Substance: EVEROLIMUS
     Indication: Epilepsy
     Dosage: 2 MG (3.1 MG/M2)
  7. EVEROLIMUS [Concomitant]
     Active Substance: EVEROLIMUS
     Dosage: INCREASED TO 4 MG (5.3 MG/M2)
  8. CARBAMAZEPINE [Concomitant]
     Active Substance: CARBAMAZEPINE
     Indication: Simple partial seizures
     Dosage: UNK
     Route: 048

REACTIONS (2)
  - Generalised tonic-clonic seizure [Recovering/Resolving]
  - Multiple-drug resistance [Unknown]
